FAERS Safety Report 14628573 (Version 2)
Quarter: 2018Q1

REPORT INFORMATION
  Report Type: Spontaneous
  Country: CA (occurrence: CA)
  Receive Date: 20180313
  Receipt Date: 20180314
  Transmission Date: 20180509
  Serious: Yes (Other)
  Sender: FDA-Public Use
  Company Number: CA-ROCHE-2086893

PATIENT
  Age: 41 Year
  Sex: Female

DRUGS (8)
  1. XOLAIR [Suspect]
     Active Substance: OMALIZUMAB
     Dosage: 300 MG, BIW
     Route: 058
     Dates: start: 20180214
  2. PREDNISONE. [Concomitant]
     Active Substance: PREDNISONE
     Dosage: 30 MG, QD
     Route: 065
  3. XOLAIR [Suspect]
     Active Substance: OMALIZUMAB
     Dosage: UNK
     Route: 058
     Dates: start: 20170428
  4. PREDNISONE. [Concomitant]
     Active Substance: PREDNISONE
     Indication: PRODUCT USED FOR UNKNOWN INDICATION
     Dosage: 1 DF, QD
     Route: 065
     Dates: end: 201701
  5. XOLAIR [Suspect]
     Active Substance: OMALIZUMAB
     Indication: ASTHMA
     Dosage: 300 MG, BIW
     Route: 058
     Dates: start: 20161124
  6. XOLAIR [Suspect]
     Active Substance: OMALIZUMAB
     Dosage: 300 MG, BIW
     Route: 058
     Dates: start: 20170303
  7. PULMICORT TURBUHALER [Concomitant]
     Active Substance: BUDESONIDE
     Indication: PRODUCT USED FOR UNKNOWN INDICATION
     Dosage: 3 DF, TID (UNITS)
     Route: 065
  8. ATROVENT [Concomitant]
     Active Substance: IPRATROPIUM BROMIDE
     Indication: PRODUCT USED FOR UNKNOWN INDICATION
     Dosage: 2 DF, BID
     Route: 065

REACTIONS (24)
  - Staphylococcal infection [Unknown]
  - Colitis ulcerative [Unknown]
  - Frustration tolerance decreased [Unknown]
  - Upper-airway cough syndrome [Unknown]
  - Sputum discoloured [Unknown]
  - Chronic sinusitis [Unknown]
  - Drug ineffective [Unknown]
  - Dyspnoea [Unknown]
  - Agitation [Unknown]
  - Erythema [Unknown]
  - Osteopenia [Unknown]
  - Arthralgia [Unknown]
  - Asthma [Unknown]
  - Breath sounds abnormal [Unknown]
  - Eosinophilic pneumonia chronic [Unknown]
  - Chest discomfort [Unknown]
  - Gait disturbance [Unknown]
  - Upper respiratory tract infection [Unknown]
  - Pseudomonas infection [Unknown]
  - Forced expiratory volume decreased [Unknown]
  - Cough [Unknown]
  - Joint swelling [Unknown]
  - Joint range of motion decreased [Unknown]
  - Wheezing [Unknown]

NARRATIVE: CASE EVENT DATE: 20170511
